FAERS Safety Report 10568052 (Version 1)
Quarter: 2014Q4

REPORT INFORMATION
  Report Type: Spontaneous
  Country: SI (occurrence: None)
  Receive Date: 20141104
  Receipt Date: 20141104
  Transmission Date: 20150529
  Serious: Yes (Other)
  Sender: FDA-Public Use
  Company Number: 2014HINLIT0959

PATIENT
  Age: 2 Year
  Sex: Male

DRUGS (3)
  1. LEVETIRACETAM. [Suspect]
     Active Substance: LEVETIRACETAM
     Indication: SEIZURE
     Dosage: DAY
  2. SODIUM VALPROATE (SODIUM VALPROATE) [Suspect]
     Active Substance: VALPROATE SODIUM
     Indication: SEIZURE
     Dosage: DAY
  3. VIGABATRIN (VIGABATRIN) [Suspect]
     Active Substance: VIGABATRIN
     Indication: SEIZURE
     Dosage: DAY

REACTIONS (1)
  - Drug reaction with eosinophilia and systemic symptoms [None]
